FAERS Safety Report 5011116-3 (Version None)
Quarter: 2006Q2

REPORT INFORMATION
  Report Type: 
  Country: None (occurrence: None)
  Receive Date: 20060525
  Receipt Date: 20060518
  Transmission Date: 20061013
  Serious: Yes (Hospitalization, Other)
  Sender: FDA-Public Use
  Company Number: GB-BRISTOL-MYERS SQUIBB COMPANY-13382106

PATIENT
  Age: 64 Year
  Sex: Female

DRUGS (5)
  1. WARFARIN SODIUM [Suspect]
  2. BENDROFLUAZIDE [Concomitant]
  3. AMILORIDE [Concomitant]
  4. ATORVASTATIN CALCIUM [Concomitant]
  5. OMEPRAZOLE [Concomitant]

REACTIONS (2)
  - HAEMATOMA [None]
  - RENAL FAILURE ACUTE [None]
